FAERS Safety Report 8078261-X (Version None)
Quarter: 2012Q1

REPORT INFORMATION
  Report Type: 
  Country: None (occurrence: None)
  Receive Date: 20120124
  Receipt Date: 20120112
  Transmission Date: 20120608
  Serious: Yes (Other)
  Sender: FDA-Public Use
  Company Number: DSA_48877_2012

PATIENT
  Age: 61 Year
  Sex: Female

DRUGS (3)
  1. ASPIRIN [Suspect]
     Indication: PRODUCT USED FOR UNKNOWN INDICATION
     Dosage: (DF ORAL)
     Route: 048
  2. RASILEZ (RASILEZ-ALISKIREN FUMARATE) (NOT SPECIFIED) [Suspect]
     Indication: HYPERTENSION
     Dosage: (300 MG QD)
     Dates: start: 20090301, end: 20111215
  3. ENALAPRIL MALEATE [Suspect]
     Indication: HYPERTENSION
     Dosage: (DF ORAL)
     Route: 048

REACTIONS (4)
  - INFLUENZA LIKE ILLNESS [None]
  - DRUG INTERACTION [None]
  - RENAL FAILURE ACUTE [None]
  - SELF-MEDICATION [None]
